FAERS Safety Report 11487673 (Version 2)
Quarter: 2017Q2

REPORT INFORMATION
  Report Type: Spontaneous
  Country: US (occurrence: US)
  Receive Date: 20150910
  Receipt Date: 20170601
  Transmission Date: 20170829
  Serious: Yes (Other)
  Sender: FDA-Public Use
  Company Number: US-AUROBINDO-AUR-APL-2015-07893

PATIENT
  Sex: Female

DRUGS (1)
  1. SERTRALINE ORAL CONCENTRATE [Suspect]
     Active Substance: SERTRALINE HYDROCHLORIDE
     Indication: DEPRESSION
     Dosage: 25 MG IN 20MG/ML
     Route: 048
     Dates: start: 2013

REACTIONS (4)
  - Drug ineffective [Not Recovered/Not Resolved]
  - Nausea [Not Recovered/Not Resolved]
  - Disability [Not Recovered/Not Resolved]
  - Tachycardia [Not Recovered/Not Resolved]
